FAERS Safety Report 8779908 (Version 1)
Quarter: 2012Q4

REPORT INFORMATION
  Report Type: 
  Country: US (occurrence: US)
  Receive Date: 20120912
  Receipt Date: 20120912
  Transmission Date: 20130627
  Serious: No
  Sender: FDA-Public Use
  Company Number: US-VERTEX PHARMACEUTICAL INC.-AE-2011-005076

PATIENT

DRUGS (11)
  1. INCIVEK [Suspect]
     Indication: HEPATITIS C
     Route: 048
  2. PEGASYS [Concomitant]
     Indication: HEPATITIS C
     Route: 058
  3. RIBAPACK [Concomitant]
     Indication: HEPATITIS C
     Route: 048
  4. PEPCID [Concomitant]
  5. DICLOFENAC [Concomitant]
  6. MULTIVITAMIN [Concomitant]
  7. CALCIUM + D [Concomitant]
  8. VITAMIN B12 [Concomitant]
  9. IRON [Concomitant]
  10. POTASSIUM [Concomitant]
  11. BENADRYL [Concomitant]

REACTIONS (3)
  - Rash erythematous [Recovered/Resolved]
  - Anaemia [Unknown]
  - Nausea [Unknown]
